FAERS Safety Report 10975284 (Version 1)
Quarter: 2015Q2

REPORT INFORMATION
  Report Type: Spontaneous
  Country: US (occurrence: US)
  Receive Date: 20150401
  Receipt Date: 20150401
  Transmission Date: 20150821
  Serious: Yes (Hospitalization)
  Sender: FDA-Public Use
  Company Number: US-BAYER-2015-084410

PATIENT
  Age: 58 Year
  Sex: Female

DRUGS (1)
  1. REGORAFENIB [Suspect]
     Active Substance: REGORAFENIB
     Indication: COLORECTAL CANCER METASTATIC

REACTIONS (5)
  - Hypophagia [None]
  - Nausea [None]
  - Hyperphosphaturia [None]
  - Hypophosphataemia [None]
  - Vomiting [None]
